FAERS Safety Report 10166759 (Version 1)
Quarter: 2014Q2

REPORT INFORMATION
  Report Type: Spontaneous
  Country: FR (occurrence: FR)
  Receive Date: 20140512
  Receipt Date: 20140512
  Transmission Date: 20141212
  Serious: Yes (Other)
  Sender: FDA-Public Use
  Company Number: FR-PFIZER INC-2014124892

PATIENT
  Age: 63 Year
  Sex: Female

DRUGS (1)
  1. ATORVASTATINE PFIZER [Suspect]
     Dosage: 10 MG, UNK

REACTIONS (7)
  - Choking [Unknown]
  - Swollen tongue [Unknown]
  - Gastric polyps [Unknown]
  - Respiratory disorder [Unknown]
  - Gait disturbance [Unknown]
  - Liver disorder [Unknown]
  - Vomiting [Unknown]
